FAERS Safety Report 5233418-8 (Version None)
Quarter: 2007Q1

REPORT INFORMATION
  Report Type: 
  Country: None (occurrence: None)
  Receive Date: 20070208
  Receipt Date: 20070130
  Transmission Date: 20070707
  Serious: Yes (Hospitalization, Other)
  Sender: FDA-Public Use
  Company Number: CA-NOVOPROD-257953

PATIENT
  Sex: Male
  Weight: 62 kg

DRUGS (8)
  1. NOVOSEVEN [Suspect]
     Indication: CEREBRAL HAEMORRHAGE
     Dosage: 20 UG/KG, UNK
     Route: 042
     Dates: start: 20061020, end: 20061020
  2. MIDAZOLAM HCL [Concomitant]
     Dosage: 2.5 MG, UNK
     Route: 042
     Dates: start: 20061020, end: 20061020
  3. FLUMAZENIL [Concomitant]
     Dosage: .3 MG, UNK
     Route: 042
     Dates: start: 20061020, end: 20061020
  4. COMBIVENT                          /01033501/ [Concomitant]
     Dosage: 8 UNK, QD
     Route: 055
     Dates: start: 20061029
  5. ECTOSONE [Concomitant]
     Dosage: 0.1%, QD
     Route: 061
     Dates: start: 20061219
  6. HEPARIN [Concomitant]
     Dosage: 5000 U, QD
     Route: 058
     Dates: start: 20061026
  7. METOPROLOL [Concomitant]
     Dosage: 50 MG, QD
     Route: 050
     Dates: start: 20061022
  8. OMEPRAZOLE [Concomitant]
     Dosage: 40 MG, QD
     Route: 050
     Dates: start: 20061028

REACTIONS (3)
  - CEREBRAL HAEMORRHAGE [None]
  - HYDROCEPHALUS [None]
  - PNEUMONIA [None]
